FAERS Safety Report 24948818 (Version 1)
Quarter: 2025Q1

REPORT INFORMATION
  Report Type: Spontaneous
  Country: US (occurrence: None)
  Receive Date: 20250207
  Receipt Date: 20250207
  Transmission Date: 20250408
  Serious: Yes (Other)
  Sender: FDA-CTU
  Company Number: None

PATIENT
  Age: 70 Year
  Sex: Male
  Weight: 61 kg

DRUGS (11)
  1. ORENCIA [Suspect]
     Active Substance: ABATACEPT
     Indication: Rheumatoid arthritis
     Route: 058
     Dates: start: 20241028, end: 202502
  2. ASPIRIN [Concomitant]
     Active Substance: ASPIRIN
  3. CALCIUM CITRATE TABLETS [Concomitant]
  4. PROBIOTIC SOFTGEL [Concomitant]
  5. TYLENOL [Concomitant]
     Active Substance: ACETAMINOPHEN
  6. ATORVASTATIN [Concomitant]
     Active Substance: ATORVASTATIN
  7. ELIQUIS [Concomitant]
     Active Substance: APIXABAN
  8. FOLIC ACID 1 MG [Concomitant]
  9. LANSOPRAZOLE30MG [Concomitant]
  10. METHOTREXATE (METHOTREXATE SODIUM) [Concomitant]
     Active Substance: METHOTREXATE SODIUM
  11. NYSTATIN ORAL SUSP 1 00000U/ML [Concomitant]

REACTIONS (2)
  - Non-Hodgkin^s lymphoma [None]
  - Adverse drug reaction [None]

NARRATIVE: CASE EVENT DATE: 20250201
